FAERS Safety Report 23350374 (Version 1)
Quarter: 2023Q4

REPORT INFORMATION
  Report Type: Spontaneous
  Country: US (occurrence: None)
  Receive Date: 20231228
  Receipt Date: 20231228
  Transmission Date: 20240110
  Serious: No
  Sender: FDA-Public Use
  Company Number: None

PATIENT

DRUGS (2)
  1. GLIPIZIDE [Suspect]
     Active Substance: GLIPIZIDE
  2. THORAZINE [Suspect]
     Active Substance: CHLORPROMAZINE

REACTIONS (6)
  - Product dispensing error [None]
  - Dizziness [None]
  - Fall [None]
  - Rib fracture [None]
  - Malaise [None]
  - Product appearance confusion [None]

NARRATIVE: CASE EVENT DATE: 20230911
